FAERS Safety Report 8786867 (Version 2)
Quarter: 2012Q4

REPORT INFORMATION
  Report Type: 
  Country: GB (occurrence: GB)
  Receive Date: 20120914
  Receipt Date: 20121016
  Transmission Date: 20130627
  Serious: Yes (Hospitalization, Other)
  Sender: FDA-Public Use
  Company Number: GB-BRISTOL-MYERS SQUIBB COMPANY-16778052

PATIENT
  Age: 67 Year
  Sex: Female

DRUGS (5)
  1. YERVOY [Suspect]
     Indication: METASTATIC MALIGNANT MELANOMA
     Dosage: second cycle: resumed on 26-Jul-2012; one cycle omitted;
Inf cyles:21May12,23Jul12,20Aug12
     Route: 042
     Dates: start: 20120521
  2. LANSOPRAZOLE [Concomitant]
  3. AMLODIPINE [Concomitant]
     Dates: end: 20120615
  4. BENDROFLUMETHIAZIDE [Concomitant]
     Dates: end: 20120615
  5. RAMIPRIL [Concomitant]
     Dates: end: 20120615

REACTIONS (9)
  - Abdominal pain [Recovered/Resolved]
  - Diarrhoea [Recovered/Resolved]
  - Vomiting [Recovered/Resolved]
  - Haemoglobin decreased [Unknown]
  - Malignant neoplasm progression [Unknown]
  - Fatigue [Unknown]
  - Endocrine disorder [Recovered/Resolved]
  - Decreased appetite [Unknown]
  - Hypotension [Unknown]
